FAERS Safety Report 17552702 (Version 1)
Quarter: 2020Q1

REPORT INFORMATION
  Report Type: Spontaneous
  Country: DE (occurrence: DE)
  Receive Date: 20200318
  Receipt Date: 20200318
  Transmission Date: 20200409
  Serious: Yes (Other)
  Sender: FDA-Public Use
  Company Number: DE-AUROBINDO-AUR-APL-2020-013325

PATIENT
  Sex: Female

DRUGS (9)
  1. KISQALI [Suspect]
     Active Substance: RIBOCICLIB
     Dosage: 400 MILLIGRAM, ONCE A DAY, (21 DAYS INTAKE, 7 DAYS PAUSE)
     Route: 048
     Dates: start: 20200101, end: 20200121
  2. LETROZOLE. [Suspect]
     Active Substance: LETROZOLE
     Indication: BREAST CANCER METASTATIC
     Dosage: 2.5 MILLIGRAM, ONCE A DAY
     Route: 048
     Dates: start: 20190621
  3. KISQALI [Suspect]
     Active Substance: RIBOCICLIB
     Dosage: 400 MILLIGRAM, ONCE A DAY,  (21 DAYS INTAKE, 7 DAYS PAUSE)
     Route: 048
     Dates: start: 20191105, end: 20191125
  4. KISQALI [Suspect]
     Active Substance: RIBOCICLIB
     Dosage: 400 MILLIGRAM, ONCE A DAY, (21 DAYS INTAKE, 7 DAYS PAUSE)
     Route: 048
     Dates: start: 20191203, end: 20191223
  5. KISQALI [Suspect]
     Active Substance: RIBOCICLIB
     Dosage: 400 MILLIGRAM, ONCE A DAY,(21 DAYS INTAKE, 7 DAYS PAUSE)
     Route: 048
     Dates: start: 20200129, end: 20200218
  6. KISQALI [Suspect]
     Active Substance: RIBOCICLIB
     Dosage: 400 MILLIGRAM, ONCE A DAY,(21 DAYS INTAKE, 7 DAYS PAUSE)
     Route: 048
     Dates: start: 20190813, end: 20190902
  7. KISQALI [Suspect]
     Active Substance: RIBOCICLIB
     Dosage: 400 MILLIGRAM, ONCE A DAY, (21 DAYS INTAKE, 7 DAYS PAUSE)
     Route: 048
     Dates: start: 20191008, end: 20191028
  8. KISQALI [Suspect]
     Active Substance: RIBOCICLIB
     Indication: BREAST CANCER METASTATIC
     Dosage: 600 MILLIGRAM, ONCE A DAY, (21 DAYS INTAKE, 7 DAYS PAUSE)
     Route: 048
     Dates: start: 20190628, end: 20190718
  9. KISQALI [Suspect]
     Active Substance: RIBOCICLIB
     Dosage: 400 MILLIGRAM, ONCE A DAY,(21 DAYS INTAKE, 7 DAYS PAUSE)
     Route: 048
     Dates: start: 20190910, end: 20190930

REACTIONS (2)
  - Infection [Recovered/Resolved]
  - Thrombosis [Recovering/Resolving]

NARRATIVE: CASE EVENT DATE: 20190729
